FAERS Safety Report 6479868-3 (Version None)
Quarter: 2009Q4

REPORT INFORMATION
  Report Type: 
  Country: None (occurrence: None)
  Receive Date: 20091208
  Receipt Date: 20091126
  Transmission Date: 20100525
  Serious: Yes (Other)
  Sender: FDA-Public Use
  Company Number: PHHY2009BR52499

PATIENT
  Sex: Female

DRUGS (4)
  1. CODATEN [Suspect]
     Indication: NEURALGIA
     Dosage: UNK
     Route: 048
     Dates: start: 20091125
  2. CODATEN [Suspect]
     Indication: PARAESTHESIA
  3. LANSOPRAZOLE [Concomitant]
     Indication: ABDOMINAL DISCOMFORT
     Dosage: ONE TABLET DAILY
  4. DIOVAN AMLO FIX [Concomitant]
     Indication: HYPERTENSION

REACTIONS (6)
  - ABDOMINAL PAIN UPPER [None]
  - ASTHENIA [None]
  - GASTRIC DISORDER [None]
  - NAUSEA [None]
  - TREATMENT NONCOMPLIANCE [None]
  - VOMITING [None]
